FAERS Safety Report 10606323 (Version 1)
Quarter: 2014Q4

REPORT INFORMATION
  Report Type: Spontaneous
  Country: GB (occurrence: None)
  Receive Date: 20141121
  Receipt Date: 20141121
  Transmission Date: 20150529
  Serious: Yes (Hospitalization, Other)
  Sender: FDA-Public Use
  Company Number: FK201405331

PATIENT
  Age: 89 Year
  Sex: Female

DRUGS (6)
  1. FOLIC ACID (FOLIC ACID) [Concomitant]
     Active Substance: FOLIC ACID
  2. FERROUS FUMARATE (FERROUS FUMARATE) [Concomitant]
  3. HYDROXOCOBALAMIN (HYDROXOCOBALAMIN) [Concomitant]
  4. CO-CODAMOL (PANADEINE CO) [Suspect]
     Active Substance: ACETAMINOPHEN\CODEINE PHOSPHATE
  5. RAMIPRIL (RAMIPRIL) [Suspect]
     Active Substance: RAMIPRIL
     Indication: CARDIAC FAILURE
     Route: 048
  6. FUROSEMIDE (MANUFACTURER UNKNOWN) (FUROSEMIDE) (FUROSEMIDE) [Suspect]
     Active Substance: FUROSEMIDE
     Indication: PRODUCT USED FOR UNKNOWN INDICATION
     Dosage: 1 IN 1 D
     Route: 048

REACTIONS (10)
  - Dehydration [None]
  - Skin turgor decreased [None]
  - Mucosal dryness [None]
  - Acute kidney injury [None]
  - Urinary hesitation [None]
  - Oedema peripheral [None]
  - Dyspnoea [None]
  - Urinary tract infection [None]
  - Urosepsis [None]
  - Hypotension [None]
